FAERS Safety Report 7198110-1 (Version None)
Quarter: 2010Q4

REPORT INFORMATION
  Report Type: 
  Country: None (occurrence: None)
  Receive Date: 20101214
  Receipt Date: 20101130
  Transmission Date: 20110411
  Serious: Yes (Other)
  Sender: FDA-Public Use
  Company Number: ACO_20462_2010

PATIENT
  Age: 81 Year
  Sex: Male
  Weight: 86.2 kg

DRUGS (37)
  1. AMPYRA [Suspect]
     Indication: BALANCE DISORDER
     Dosage: 10 MG, BID, ORAL; 10 MG, QD, ORAL; 10 MG, Q 12 HRS, ORAL
     Route: 048
     Dates: start: 20101015, end: 20101017
  2. AMPYRA [Suspect]
     Indication: GAIT DISTURBANCE
     Dosage: 10 MG, BID, ORAL; 10 MG, QD, ORAL; 10 MG, Q 12 HRS, ORAL
     Route: 048
     Dates: start: 20101015, end: 20101017
  3. AMPYRA [Suspect]
     Indication: BALANCE DISORDER
     Dosage: 10 MG, BID, ORAL; 10 MG, QD, ORAL; 10 MG, Q 12 HRS, ORAL
     Route: 048
     Dates: start: 20101018, end: 20101030
  4. AMPYRA [Suspect]
     Indication: GAIT DISTURBANCE
     Dosage: 10 MG, BID, ORAL; 10 MG, QD, ORAL; 10 MG, Q 12 HRS, ORAL
     Route: 048
     Dates: start: 20101018, end: 20101030
  5. AMPYRA [Suspect]
     Indication: BALANCE DISORDER
     Dosage: 10 MG, BID, ORAL; 10 MG, QD, ORAL; 10 MG, Q 12 HRS, ORAL
     Route: 048
     Dates: start: 20101101, end: 20101115
  6. AMPYRA [Suspect]
     Indication: GAIT DISTURBANCE
     Dosage: 10 MG, BID, ORAL; 10 MG, QD, ORAL; 10 MG, Q 12 HRS, ORAL
     Route: 048
     Dates: start: 20101101, end: 20101115
  7. AMPYRA [Suspect]
  8. DIGOXIN [Concomitant]
  9. NIASPAN [Concomitant]
  10. CARDIZEM [Concomitant]
  11. BACLOFEN [Concomitant]
  12. DIAZEPAM [Concomitant]
  13. AMANTADINE HCL [Concomitant]
  14. VINPOCETINE (VINPOCETINE) [Concomitant]
  15. CARBIDOPA/LEVODOPA (CARBIDOPA, LEVODOPA) [Concomitant]
  16. MIRAPEX [Concomitant]
  17. FLOMAX /00889901/ (MORNIFLUMATE) [Concomitant]
  18. FINASTERIDE [Concomitant]
  19. LAMICTAL [Concomitant]
  20. GLYCOLAX (MACROGOL) [Concomitant]
  21. STOOL SOFTENER (DOCUSATE SODIUM) [Concomitant]
  22. PRILOSEC [Concomitant]
  23. MULTI-VITAMINS VITAFIT (CALCIUM PANTOTHENATE, FOLIC ACID, VITAMINS NOS [Concomitant]
  24. COQ10 (UBIDECARENONE) [Concomitant]
  25. VITAMIN D NOS (VITAMIN D NOS) [Concomitant]
  26. ERGOCALCIFEROL [Concomitant]
  27. VITAMIN K2 /00564301/ (MENAQUINONE) [Concomitant]
  28. VITAMIN C /00008001/ (ASCORBIC ACID) [Concomitant]
  29. VITAMIN B-12 [Concomitant]
  30. ASPIRIN [Concomitant]
  31. GLUCOSAMINE (GLUCOSAMINE) [Concomitant]
  32. BONE ASSURE [Concomitant]
  33. MAGNESIUM CITRATE (MAGNESIUM CITRATE) [Concomitant]
  34. EPA /01403701/ (OMEGA-3 MARINE TRIGLYCERIDES) [Concomitant]
  35. FLAXSEED OIL (LINUM USITATISSIMUM SEED OIL) [Concomitant]
  36. LECITHIN (LECITHIN) [Concomitant]
  37. METOPROLOL SUCCINATE [Concomitant]

REACTIONS (14)
  - BALANCE DISORDER [None]
  - COGNITIVE DISORDER [None]
  - CONSTIPATION [None]
  - CONTUSION [None]
  - FALL [None]
  - GAIT DISTURBANCE [None]
  - HALLUCINATION, AUDITORY [None]
  - HEAD INJURY [None]
  - INAPPROPRIATE SCHEDULE OF DRUG ADMINISTRATION [None]
  - MIDDLE INSOMNIA [None]
  - MULTIPLE SCLEROSIS RELAPSE [None]
  - OFF LABEL USE [None]
  - SKIN BURNING SENSATION [None]
  - WOUND [None]
